FAERS Safety Report 8037374-9 (Version None)
Quarter: 2012Q1

REPORT INFORMATION
  Report Type: 
  Country: None (occurrence: None)
  Receive Date: 20120111
  Receipt Date: 20120106
  Transmission Date: 20120608
  Serious: Yes (Other)
  Sender: FDA-Public Use
  Company Number: US-PFIZER INC-2012004987

PATIENT
  Sex: Male
  Weight: 105 kg

DRUGS (8)
  1. PERCOCET [Concomitant]
     Indication: PROPHYLAXIS
     Dosage: UNK
     Route: 048
  2. TYLENOL PM [Concomitant]
     Indication: SLEEP DISORDER
     Dosage: 500 MG, UNK
  3. VIAGRA [Suspect]
     Indication: SEXUAL DYSFUNCTION
     Dosage: 100 MG, UNK
     Route: 048
     Dates: start: 20010101
  4. IBUPROFEN (ADVIL) [Concomitant]
     Dosage: TWO TABLETS, UNK
  5. ATENOLOL [Concomitant]
     Dosage: THREE TABLETS, UNK
  6. VIAGRA [Suspect]
     Dosage: 6-7 TABLETS OF 100 MG
     Dates: start: 20120104, end: 20120105
  7. SYNTHROID [Concomitant]
     Dosage: 100 UG, UNK
     Route: 048
  8. AMBIEN [Concomitant]
     Dosage: FIVE TABLETS, UNK

REACTIONS (2)
  - INCORRECT DOSE ADMINISTERED [None]
  - SKIN DISCOLOURATION [None]
